FAERS Safety Report 25378405 (Version 1)
Quarter: 2025Q2

REPORT INFORMATION
  Report Type: Spontaneous
  Country: US (occurrence: US)
  Receive Date: 20250530
  Receipt Date: 20250530
  Transmission Date: 20250717
  Serious: No
  Sender: DR REDDYS
  Company Number: None

PATIENT
  Sex: Female

DRUGS (1)
  1. MORPHINE [Suspect]
     Active Substance: MORPHINE
     Indication: Product used for unknown indication

REACTIONS (1)
  - Dyspnoea [Unknown]
